FAERS Safety Report 5993819-7 (Version None)
Quarter: 2008Q4

REPORT INFORMATION
  Report Type: 
  Country: None (occurrence: None)
  Receive Date: 20081212
  Receipt Date: 20081113
  Transmission Date: 20090506
  Serious: No
  Sender: FDA-Public Use
  Company Number: US-ABBOTT-07P-163-0431671-00

PATIENT
  Sex: Female

DRUGS (2)
  1. HUMIRA [Suspect]
     Indication: RHEUMATOID ARTHRITIS
     Dates: start: 20070706, end: 20080601
  2. METHOTREXATE [Concomitant]
     Indication: RHEUMATOID ARTHRITIS
     Route: 050

REACTIONS (7)
  - EYE INFLAMMATION [None]
  - INFECTION [None]
  - MALIGNANT MELANOMA [None]
  - NASOPHARYNGITIS [None]
  - PYREXIA [None]
  - TINEA PEDIS [None]
  - URINARY TRACT INFECTION [None]
